FAERS Safety Report 10149249 (Version 3)
Quarter: 2014Q2

REPORT INFORMATION
  Report Type: Report from Study
  Country: US (occurrence: US)
  Receive Date: 20140502
  Receipt Date: 20140602
  Transmission Date: 20141212
  Serious: Yes (Hospitalization)
  Sender: FDA-Public Use
  Company Number: US-JNJFOC-20140415517

PATIENT
  Age: 59 Year
  Sex: Male
  Weight: 91 kg

DRUGS (15)
  1. CISAPRIDE [Suspect]
     Indication: GASTROINTESTINAL MOTILITY DISORDER
     Dosage: STARTED AT 15:00??STOPPED AT 13:20
     Route: 048
     Dates: start: 20010305, end: 20140422
  2. CISAPRIDE [Suspect]
     Indication: GASTROOESOPHAGEAL REFLUX DISEASE
     Dosage: STARTED AT 15:00??STOPPED AT 13:20
     Route: 048
     Dates: start: 20010305, end: 20140422
  3. ULTRALENTE INSULIN [Concomitant]
     Indication: DIABETES MELLITUS
     Route: 058
  4. HUMALOG INSULIN [Concomitant]
     Route: 058
  5. PRILOSEC [Concomitant]
     Indication: GASTROOESOPHAGEAL REFLUX DISEASE
     Route: 048
     Dates: end: 20020718
  6. LEVSIN SL [Concomitant]
     Indication: ABDOMINAL PAIN
     Route: 065
     Dates: end: 20011221
  7. DIPROLENE AF [Concomitant]
     Indication: ECZEMA
     Route: 065
     Dates: start: 20010413, end: 20010516
  8. NEXIUM [Concomitant]
     Indication: GASTROOESOPHAGEAL REFLUX DISEASE
     Route: 048
     Dates: start: 20020718, end: 20130703
  9. XANAX [Concomitant]
     Indication: ANXIETY
     Route: 065
     Dates: start: 20020923, end: 20020926
  10. CYMBALTA [Concomitant]
     Indication: DEPRESSION
     Route: 065
     Dates: start: 20050812, end: 20060201
  11. CYMBALTA [Concomitant]
     Indication: DEPRESSION
     Route: 065
     Dates: start: 20060201, end: 20060915
  12. ZETIA [Concomitant]
     Indication: HYPERCHOLESTEROLAEMIA
     Route: 065
     Dates: start: 20070415
  13. LOVAZA [Concomitant]
     Indication: HYPERTRIGLYCERIDAEMIA
     Route: 065
     Dates: start: 20080611
  14. DEXILANT [Concomitant]
     Indication: GASTROOESOPHAGEAL REFLUX DISEASE
     Route: 048
     Dates: start: 20130703
  15. ULTRAM [Concomitant]
     Indication: ARTHRALGIA
     Route: 065
     Dates: start: 20030212, end: 20030315

REACTIONS (1)
  - Electrocardiogram QT prolonged [Recovered/Resolved]
